FAERS Safety Report 6132586-3 (Version None)
Quarter: 2009Q1

REPORT INFORMATION
  Report Type: 
  Country: None (occurrence: None)
  Receive Date: 20090324
  Receipt Date: 20090313
  Transmission Date: 20090719
  Serious: Yes (Hospitalization)
  Sender: FDA-Public Use
  Company Number: GXKR2009GB03315

PATIENT
  Age: 16 Year
  Sex: Male

DRUGS (3)
  1. FLECAINIDE (NGX) (FLECAINIDE) [Suspect]
     Indication: INCORRECT DOSE ADMINISTERED
  2. ACETAMINOPHEN [Concomitant]
  3. CODEINE SUL TAB [Concomitant]

REACTIONS (16)
  - BLOOD PRESSURE DECREASED [None]
  - CARDIOTOXICITY [None]
  - CHEST DISCOMFORT [None]
  - CIRCULATORY COLLAPSE [None]
  - DEPRESSED LEVEL OF CONSCIOUSNESS [None]
  - DRUG INEFFECTIVE [None]
  - ELECTROCARDIOGRAM ABNORMAL [None]
  - ELECTROCARDIOGRAM QRS COMPLEX PROLONGED [None]
  - EMOTIONAL DISORDER [None]
  - INTENTIONAL OVERDOSE [None]
  - METABOLIC ACIDOSIS [None]
  - QRS AXIS ABNORMAL [None]
  - SOMNOLENCE [None]
  - SUPRAVENTRICULAR TACHYCARDIA [None]
  - VENTRICULAR TACHYCARDIA [None]
  - VOMITING [None]
